FAERS Safety Report 24380592 (Version 2)
Quarter: 2024Q4

REPORT INFORMATION
  Report Type: Spontaneous
  Country: GB (occurrence: GB)
  Receive Date: 20240930
  Receipt Date: 20241023
  Transmission Date: 20250115
  Serious: Yes (Death, Other)
  Sender: DAIICHI
  Company Number: GB-DSJP-DS-2024-101201-GB

PATIENT
  Age: 43 Year
  Sex: Female

DRUGS (1)
  1. ENHERTU [Suspect]
     Active Substance: FAM-TRASTUZUMAB DERUXTECAN-NXKI
     Indication: Product used for unknown indication
     Dosage: UNK (8 CYCLES)
     Route: 065
     Dates: start: 20220216, end: 20220727

REACTIONS (2)
  - Disease progression [Fatal]
  - Drug resistance [Unknown]
